FAERS Safety Report 18253060 (Version 4)
Quarter: 2021Q2

REPORT INFORMATION
  Report Type: Spontaneous
  Country: US (occurrence: US)
  Receive Date: 20200910
  Receipt Date: 20210401
  Transmission Date: 20210717
  Serious: Yes (Hospitalization, Other)
  Sender: FDA-Public Use
  Company Number: US-PFIZER INC-2020347792

PATIENT
  Age: 71 Year
  Sex: Male

DRUGS (1)
  1. VYNDAQEL [Suspect]
     Active Substance: TAFAMIDIS MEGLUMINE
     Dosage: 80 MG

REACTIONS (6)
  - Femur fracture [Unknown]
  - Malaise [Unknown]
  - Pain [Unknown]
  - Hip fracture [Unknown]
  - Dizziness [Unknown]
  - Mental disorder [Unknown]

NARRATIVE: CASE EVENT DATE: 202102
